FAERS Safety Report 23677876 (Version 1)
Quarter: 2024Q1

REPORT INFORMATION
  Report Type: Spontaneous
  Country: US (occurrence: US)
  Receive Date: 20240327
  Receipt Date: 20240327
  Transmission Date: 20240410
  Serious: Yes (Death, Hospitalization)
  Sender: FDA-Public Use
  Company Number: US-MYLANLABS-2024M1027097

PATIENT
  Age: 65 Year
  Sex: Male

DRUGS (13)
  1. DOXORUBICIN [Suspect]
     Active Substance: DOXORUBICIN
     Indication: Malignant mediastinal neoplasm
     Dosage: UNK
     Route: 065
  2. DOXORUBICIN [Suspect]
     Active Substance: DOXORUBICIN
     Indication: Sarcoma
  3. IFOSFAMIDE [Suspect]
     Active Substance: IFOSFAMIDE
     Indication: Malignant mediastinal neoplasm
     Dosage: UNK
     Route: 065
  4. IFOSFAMIDE [Suspect]
     Active Substance: IFOSFAMIDE
     Indication: Sarcoma
  5. COLCHICINE [Suspect]
     Active Substance: COLCHICINE
     Indication: Radiation pericarditis
     Dosage: UNK
     Route: 065
     Dates: start: 20220626
  6. IBUPROFEN [Suspect]
     Active Substance: IBUPROFEN
     Indication: Radiation pericarditis
     Dosage: UNK
     Route: 065
     Dates: start: 20220626, end: 20220627
  7. PREDNISONE [Suspect]
     Active Substance: PREDNISONE
     Indication: Radiation pericarditis
     Dosage: UNK
     Route: 048
     Dates: start: 20220627, end: 20220630
  8. PIPERACILLIN AND TAZOBACTAM [Suspect]
     Active Substance: PIPERACILLIN SODIUM\TAZOBACTAM SODIUM
     Indication: Bacterial pericarditis
     Dosage: UNK
     Route: 042
     Dates: start: 20220701
  9. VANCOMYCIN [Concomitant]
     Active Substance: VANCOMYCIN
     Indication: Evidence based treatment
     Dosage: UNK
     Route: 065
     Dates: start: 20220630, end: 20220701
  10. CEFTRIAXONE [Concomitant]
     Active Substance: CEFTRIAXONE\CEFTRIAXONE SODIUM
     Indication: Evidence based treatment
     Dosage: UNK
     Route: 065
     Dates: start: 20220630, end: 20220701
  11. FLUCONAZOLE [Concomitant]
     Active Substance: FLUCONAZOLE
     Indication: Candida infection
     Dosage: UNK
     Route: 065
     Dates: start: 20220701, end: 20220704
  12. MICAFUNGIN [Concomitant]
     Active Substance: MICAFUNGIN SODIUM
     Indication: Candida infection
     Dosage: UNK
     Route: 065
     Dates: start: 20220704
  13. AMIODARONE [Concomitant]
     Active Substance: AMIODARONE
     Indication: Atrial fibrillation
     Dosage: UNK
     Route: 042
     Dates: start: 20220627

REACTIONS (2)
  - Drug ineffective [Fatal]
  - Off label use [Unknown]
